FAERS Safety Report 6558272-3 (Version None)
Quarter: 2010Q1

REPORT INFORMATION
  Report Type: 
  Country: None (occurrence: None)
  Receive Date: 20100129
  Receipt Date: 20100119
  Transmission Date: 20100710
  Serious: Yes (Hospitalization)
  Sender: FDA-Public Use
  Company Number: US-JNJFOC-20100107396

PATIENT
  Sex: Male
  Weight: 46.7 kg

DRUGS (7)
  1. REMICADE [Suspect]
     Indication: CROHN'S DISEASE
     Route: 042
  2. REMICADE [Suspect]
     Route: 042
  3. REMICADE [Suspect]
     Route: 042
  4. FLAGYL [Concomitant]
  5. BENTYL [Concomitant]
     Dosage: PRN
  6. ZOFRAN [Concomitant]
     Dosage: PRN
  7. BENADRYL [Concomitant]
     Indication: PREMEDICATION

REACTIONS (1)
  - CROHN'S DISEASE [None]
